FAERS Safety Report 10083785 (Version 1)
Quarter: 2014Q2

REPORT INFORMATION
  Report Type: Report from Study
  Country: US (occurrence: US)
  Receive Date: 20140417
  Receipt Date: 20140417
  Transmission Date: 20141212
  Serious: Yes (Other)
  Sender: FDA-Public Use
  Company Number: US-ROCHE-1385505

PATIENT
  Sex: Female
  Weight: 99.88 kg

DRUGS (4)
  1. AVASTIN [Suspect]
     Indication: COLORECTAL CANCER METASTATIC
     Route: 042
  2. RANITIDINE [Concomitant]
     Route: 048
  3. LEVOXYL [Concomitant]
     Route: 048
  4. CITALOPRAM [Concomitant]
     Route: 048

REACTIONS (3)
  - Rectal haemorrhage [Not Recovered/Not Resolved]
  - Micturition frequency decreased [Not Recovered/Not Resolved]
  - Abdominal pain [Not Recovered/Not Resolved]
